FAERS Safety Report 14194779 (Version 1)
Quarter: 2017Q4

REPORT INFORMATION
  Report Type: Spontaneous
  Country: US (occurrence: None)
  Receive Date: 20171115
  Receipt Date: 20171115
  Transmission Date: 20180321
  Serious: Yes (Hospitalization)
  Sender: FDA-Public Use
  Company Number: None

PATIENT
  Age: 7 Year
  Sex: Female
  Weight: 22.7 kg

DRUGS (3)
  1. DEXAMETHASONE. [Suspect]
     Active Substance: DEXAMETHASONE
     Dates: end: 20171103
  2. METHOTREXATE. [Suspect]
     Active Substance: METHOTREXATE
     Dates: end: 20171102
  3. VINCRISTINE SULFATE. [Suspect]
     Active Substance: VINCRISTINE SULFATE

REACTIONS (9)
  - Blood magnesium abnormal [None]
  - Blood potassium abnormal [None]
  - Abdominal pain [None]
  - Somnolence [None]
  - Urine output decreased [None]
  - Mental status changes [None]
  - Specific gravity urine abnormal [None]
  - Toxicity to various agents [None]
  - Musculoskeletal pain [None]

NARRATIVE: CASE EVENT DATE: 20171103
